FAERS Safety Report 9049930 (Version 1)
Quarter: 2013Q1

REPORT INFORMATION
  Report Type: Spontaneous
  Country: US (occurrence: US)
  Receive Date: 20130205
  Receipt Date: 20130205
  Transmission Date: 20140127
  Serious: Yes (Hospitalization, Other)
  Sender: FDA-Public Use
  Company Number: US-AMGEN-USASP2013006046

PATIENT
  Age: 60 Year
  Sex: Female

DRUGS (3)
  1. NPLATE [Suspect]
     Indication: PRODUCT USED FOR UNKNOWN INDICATION
     Dosage: 7 DF, UNK
  2. RITUXIMAB [Concomitant]
  3. STEROID ANTIBACTERIALS [Concomitant]

REACTIONS (5)
  - Platelet count decreased [Unknown]
  - Haemoglobin decreased [Recovered/Resolved]
  - Epistaxis [Unknown]
  - Antibody test positive [Unknown]
  - Red cell distribution width increased [Unknown]
